FAERS Safety Report 10079249 (Version 2)
Quarter: 2014Q2

REPORT INFORMATION
  Report Type: Spontaneous
  Country: US (occurrence: US)
  Receive Date: 20140415
  Receipt Date: 20140523
  Transmission Date: 20141212
  Serious: Yes (Other)
  Sender: FDA-Public Use
  Company Number: US-ASTRAZENECA-2014SE24632

PATIENT
  Age: 17518 Day
  Sex: Female
  Weight: 57.6 kg

DRUGS (3)
  1. SYMBICORT [Suspect]
     Indication: ASTHMA
     Dosage: 160/4.5MCG, 2 PUFFS BID
     Route: 055
  2. HFA PRO AIR [Concomitant]
     Indication: ASTHMA
  3. PREDNISONE [Concomitant]
     Indication: ASTHMA

REACTIONS (2)
  - Dyspnoea [Unknown]
  - Circumstance or information capable of leading to medication error [Unknown]
